FAERS Safety Report 16254953 (Version 5)
Quarter: 2019Q2

REPORT INFORMATION
  Report Type: Spontaneous
  Country: US (occurrence: US)
  Receive Date: 20190430
  Receipt Date: 20190607
  Transmission Date: 20190711
  Serious: No
  Sender: FDA-Public Use
  Company Number: US-BIOGEN-2019BI00730374

PATIENT
  Age: 66 Year
  Sex: Female

DRUGS (3)
  1. TECFIDERA [Suspect]
     Active Substance: DIMETHYL FUMARATE
     Indication: MULTIPLE SCLEROSIS
     Route: 050
  2. AVONEX [Suspect]
     Active Substance: INTERFERON BETA-1A
     Route: 030
     Dates: end: 201903
  3. AVONEX [Suspect]
     Active Substance: INTERFERON BETA-1A
     Indication: MULTIPLE SCLEROSIS
     Route: 065
     Dates: start: 20131003

REACTIONS (12)
  - Insomnia [Unknown]
  - Posture abnormal [Not Recovered/Not Resolved]
  - Muscle twitching [Not Recovered/Not Resolved]
  - Confusional state [Unknown]
  - Somnolence [Not Recovered/Not Resolved]
  - Pain in extremity [Unknown]
  - Injection site cellulitis [Unknown]
  - Needle issue [Unknown]
  - Injection site pain [Unknown]
  - Back pain [Unknown]
  - Musculoskeletal disorder [Unknown]
  - Motor dysfunction [Not Recovered/Not Resolved]

NARRATIVE: CASE EVENT DATE: 20190321
